FAERS Safety Report 7777659-4 (Version None)
Quarter: 2011Q3

REPORT INFORMATION
  Report Type: 
  Country: None (occurrence: None)
  Receive Date: 20110922
  Receipt Date: 20110914
  Transmission Date: 20111222
  Serious: Yes (Hospitalization)
  Sender: FDA-Public Use
  Company Number: VER-2011-00727

PATIENT
  Age: 72 Year
  Sex: Male

DRUGS (7)
  1. AMLODIPINE [Concomitant]
  2. NOVOLOG [Concomitant]
  3. COZAAR [Concomitant]
  4. LANTUS [Concomitant]
  5. CYCLOSET [Suspect]
     Indication: DIABETES MELLITUS
     Dosage: ORAL
     Route: 048
     Dates: start: 20110329, end: 20110816
  6. WARFARIN SODIUM [Concomitant]
  7. TRAMADOL HCL [Concomitant]

REACTIONS (3)
  - BRADYCARDIA [None]
  - RENAL FAILURE ACUTE [None]
  - BLOOD ELECTROLYTES ABNORMAL [None]
